FAERS Safety Report 7320668-X (Version None)
Quarter: 2011Q1

REPORT INFORMATION
  Report Type: 
  Country: None (occurrence: None)
  Receive Date: 20110228
  Receipt Date: 20110218
  Transmission Date: 20110831
  Serious: Yes (Other)
  Sender: FDA-Public Use
  Company Number: PHHY2011CO06148

PATIENT
  Sex: Male

DRUGS (7)
  1. ALLOPURINOL [Concomitant]
     Dosage: 300 MG, UNK
  2. FUROSEMIDE [Concomitant]
     Dosage: 40 MG, UNK
  3. TRAZODONE [Concomitant]
     Dosage: 50 MG, PER NIGHT
  4. EXELON [Suspect]
     Indication: DEMENTIA ALZHEIMER'S TYPE
     Dosage: 4.6 MG/24 HOUR
     Route: 062
     Dates: start: 20110120
  5. FLUOXETINE [Concomitant]
  6. OXYGEN [Concomitant]
     Dosage: 2 L, PER MINUTE
  7. COUMADIN [Concomitant]
     Dosage: 2.5 MG, UNK

REACTIONS (4)
  - ANXIETY [None]
  - AGGRESSION [None]
  - STUBBORNNESS [None]
  - DROWNING [None]
